FAERS Safety Report 19766901 (Version 2)
Quarter: 2021Q3

REPORT INFORMATION
  Report Type: Spontaneous
  Country: US (occurrence: US)
  Receive Date: 20210830
  Receipt Date: 20210928
  Transmission Date: 20211014
  Serious: Yes (Hospitalization)
  Sender: FDA-Public Use
  Company Number: US-BAUSCH-BL-2021-028576

PATIENT
  Age: 21 Year
  Sex: Female

DRUGS (1)
  1. CALCIUM DISODIUM VERSENATE [Suspect]
     Active Substance: EDETATE CALCIUM DISODIUM
     Indication: TOXICITY TO VARIOUS AGENTS
     Route: 065

REACTIONS (3)
  - Therapy interrupted [Unknown]
  - Hospitalisation [Unknown]
  - Product availability issue [Unknown]
